FAERS Safety Report 10042710 (Version 1)
Quarter: 2014Q1

REPORT INFORMATION
  Report Type: Spontaneous
  Country: US (occurrence: US)
  Receive Date: 20140327
  Receipt Date: 20140327
  Transmission Date: 20141002
  Serious: No
  Sender: FDA-Public Use
  Company Number: US-PFIZER INC-2014085461

PATIENT
  Age: 61 Year
  Sex: Male
  Weight: 110 kg

DRUGS (3)
  1. LYRICA [Suspect]
     Indication: FIBROMYALGIA
     Dosage: 75 MG, 2X/DAY
     Route: 048
     Dates: start: 2012
  2. LOPRESSOR [Concomitant]
     Indication: HYPERTENSION
     Dosage: UNK, 2X/DAY
  3. JANUVIA [Concomitant]
     Indication: DIABETES MELLITUS
     Dosage: UNK, 1X/DAY (AT NIGHT)

REACTIONS (3)
  - Drug ineffective [Unknown]
  - Burning sensation [Unknown]
  - Pain [Unknown]
